FAERS Safety Report 7892173-3 (Version None)
Quarter: 2011Q4

REPORT INFORMATION
  Report Type: 
  Country: None (occurrence: None)
  Receive Date: 20111103
  Receipt Date: 20111025
  Transmission Date: 20120403
  Serious: Yes (Hospitalization, Other)
  Sender: FDA-Public Use
  Company Number: US-ASTRAZENECA-2011SE28663

PATIENT
  Age: 59 Year
  Sex: Male
  Weight: 99.8 kg

DRUGS (4)
  1. SEROQUEL [Suspect]
     Indication: DEPRESSION
     Route: 048
     Dates: start: 20090101
  2. SEROQUEL [Suspect]
     Route: 048
  3. CRESTOR [Concomitant]
     Route: 048
  4. XANAX [Concomitant]

REACTIONS (8)
  - DRUG DOSE OMISSION [None]
  - BALANCE DISORDER [None]
  - WRONG TECHNIQUE IN DRUG USAGE PROCESS [None]
  - INSOMNIA [None]
  - DRUG WITHDRAWAL SYNDROME [None]
  - APPENDICITIS PERFORATED [None]
  - CLOSTRIDIAL INFECTION [None]
  - FEELING ABNORMAL [None]
